FAERS Safety Report 10070301 (Version 1)
Quarter: 2014Q2

REPORT INFORMATION
  Report Type: Spontaneous
  Country: US (occurrence: None)
  Receive Date: 20140408
  Receipt Date: 20140408
  Transmission Date: 20141212
  Serious: Yes (Hospitalization, Other)
  Sender: FDA-Public Use
  Company Number: OPCR20140110

PATIENT
  Age: 38 Year
  Sex: Female

DRUGS (1)
  1. OPANA ER [Suspect]
     Indication: DRUG ABUSE
     Route: 042

REACTIONS (7)
  - Abdominal pain [None]
  - Drug abuse [None]
  - Thrombotic thrombocytopenic purpura [None]
  - Thrombotic microangiopathy [None]
  - Renal failure acute [None]
  - Wrong technique in drug usage process [None]
  - Incorrect route of drug administration [None]
